FAERS Safety Report 7980034-0 (Version None)
Quarter: 2011Q4

REPORT INFORMATION
  Report Type: 
  Country: None (occurrence: None)
  Receive Date: 20111214
  Receipt Date: 20111205
  Transmission Date: 20120403
  Serious: Yes (Death, Other)
  Sender: FDA-Public Use
  Company Number: PHHY2011US108221

PATIENT
  Age: 84 Year
  Sex: Female

DRUGS (3)
  1. OXYCODONE HYDROCHLORIDE [Suspect]
  2. LORAZEPAM [Suspect]
  3. METOPROLOL TARTRATE [Suspect]
     Dosage: UNK UKN, UNK

REACTIONS (1)
  - SUICIDAL IDEATION [None]
